FAERS Safety Report 7902060-X (Version None)
Quarter: 2011Q4

REPORT INFORMATION
  Report Type: 
  Country: None (occurrence: None)
  Receive Date: 20111108
  Receipt Date: 20111029
  Transmission Date: 20120403
  Serious: Yes (Other)
  Sender: FDA-Public Use
  Company Number: GB-GLAXOSMITHKLINE-B0759631A

PATIENT
  Sex: Female

DRUGS (1)
  1. REQUIP [Suspect]
     Indication: PARKINSON'S DISEASE
     Route: 048
     Dates: start: 20080101

REACTIONS (3)
  - SOMNOLENCE [None]
  - NAUSEA [None]
  - SLEEP ATTACKS [None]
